FAERS Safety Report 7835572-8 (Version None)
Quarter: 2011Q4

REPORT INFORMATION
  Report Type: 
  Country: None (occurrence: None)
  Receive Date: 20111024
  Receipt Date: 20111013
  Transmission Date: 20120403
  Serious: Yes (Hospitalization, Other)
  Sender: FDA-Public Use
  Company Number: US-ASTRAZENECA-2011SE11605

PATIENT
  Age: 66 Year
  Sex: Male

DRUGS (79)
  1. LISINOPRIL [Suspect]
     Route: 048
  2. METOPROLOL TARTRATE [Suspect]
     Route: 048
  3. TOPROL-XL [Concomitant]
     Route: 048
  4. CLONAZEPAM [Concomitant]
     Route: 048
  5. PREDNISOLONE [Concomitant]
     Route: 048
  6. OXYCODONE HCL AND ACETAMINOPHEN [Concomitant]
     Indication: PAIN
     Dosage: 5/325 MG AS REQUIRED.
     Route: 048
  7. OLANZAPINE [Concomitant]
     Route: 048
  8. OLANZAPINE [Concomitant]
     Route: 048
  9. DOXAZOSIN MESYLATE [Concomitant]
     Route: 048
  10. ESZOPICLONE [Concomitant]
     Indication: SLEEP DISORDER
     Route: 048
  11. ATIVAN [Concomitant]
     Dosage: 1-2 MG
     Route: 048
  12. ONDANSETRON [Concomitant]
     Indication: VOMITING
     Dosage: 4 MG/2 ML PRN
     Route: 042
  13. LUBINOL [Concomitant]
     Route: 048
  14. CIPROFLOXACIN [Concomitant]
  15. PRILOSEC [Suspect]
     Indication: GASTROOESOPHAGEAL REFLUX DISEASE
     Route: 048
  16. SEROQUEL [Suspect]
     Route: 048
  17. SEROQUEL [Suspect]
     Dosage: 200 MG IN THE MORNING AND 400 MG AT BEDTIME
     Route: 048
  18. NEXIUM [Concomitant]
  19. CLONAZEPAM [Concomitant]
     Route: 048
  20. DEXTROSE 50% [Concomitant]
     Dosage: 12.5 GM/25 ML
     Route: 042
  21. OLANZAPINE [Concomitant]
     Route: 048
  22. OLANZAPINE [Concomitant]
     Route: 048
  23. OLANZAPINE [Concomitant]
     Route: 048
  24. DOCUSATE SODIUM [Concomitant]
     Route: 048
  25. METFORMIN HCL [Concomitant]
     Route: 048
  26. ATIVAN [Concomitant]
     Indication: AGITATION
     Dosage: 1-2 MG/0.5-1 ML PRN
     Route: 030
  27. MAGNESIUM HYDROXIDE TAB [Concomitant]
  28. ZOLPIDEM TARTRATE [Concomitant]
     Route: 048
  29. ASPIRIN [Concomitant]
  30. PRILOSEC [Suspect]
     Indication: GASTRIC DISORDER
     Route: 048
  31. LEVAQUIN [Concomitant]
     Route: 048
  32. OXYCODONE HCL AND ACETAMINOPHEN [Concomitant]
     Route: 048
  33. OLANZAPINE [Concomitant]
     Indication: PSYCHOTIC DISORDER
     Dosage: 2.5-5MG/0.5-1 TABLET
     Route: 048
  34. OLANZAPINE [Concomitant]
     Route: 048
  35. OLANZAPINE [Concomitant]
     Route: 048
  36. OLANZAPINE [Concomitant]
     Route: 048
  37. ALLOPURINOL [Concomitant]
     Route: 048
  38. DONEPEZIL HCL [Concomitant]
     Route: 048
  39. ZIPRASIDONE MESYLATE [Concomitant]
     Dosage: 20 MG/ML PRN
  40. HALDOL [Concomitant]
     Route: 030
  41. COREG [Concomitant]
     Route: 048
  42. MELATONIN [Concomitant]
     Indication: INSOMNIA
     Route: 048
  43. SODIUM CHLORIDE 0.9% [Concomitant]
     Dosage: PRN
     Route: 042
  44. OLANZAPINE [Concomitant]
     Route: 048
  45. GABAPENTIN [Concomitant]
     Route: 048
  46. ENOXAPARIN [Concomitant]
     Dosage: 30MG/0.3 ML DAILY
     Route: 058
  47. ATIVAN [Concomitant]
     Indication: PSYCHOTIC DISORDER
     Dosage: 1-2 MG/0.5-1 ML PRN
     Route: 030
  48. WARFARIN SODIUM [Concomitant]
     Route: 048
  49. OLANZAPINE [Concomitant]
     Route: 048
  50. MAGNESIUM HYDROXIDE [Concomitant]
     Indication: CONSTIPATION
  51. HYDROCHLOROTHIAZIDE [Concomitant]
     Route: 048
  52. ONDANSETRON [Concomitant]
     Indication: NAUSEA
     Dosage: 4 MG/2 ML PRN
     Route: 042
  53. SEROQUEL [Suspect]
     Route: 048
  54. MEMANTINE HCL [Concomitant]
     Route: 048
  55. REMERON [Concomitant]
     Dosage: 22.5 MG/1.5 HS
     Route: 048
  56. REMERON [Concomitant]
     Route: 048
  57. MELATONIN [Concomitant]
     Route: 048
  58. OXYCODONE HCL AND ACETAMINOPHEN [Concomitant]
     Route: 048
  59. NOVOLIN R [Concomitant]
     Dosage: PRN
     Route: 058
  60. OLANZAPINE [Concomitant]
     Route: 048
  61. ALLOPURINOL [Concomitant]
     Route: 048
  62. ALUMINIUM MAGNESIUM HYDROXIDE [Concomitant]
     Indication: DYSPEPSIA
  63. HALOPERIDOL LACTATE [Concomitant]
     Dosage: 5 MG/ML PRN
     Route: 030
  64. AMITRIPTYLINE HCL [Concomitant]
  65. PLAVIX [Concomitant]
  66. LISINOPRIL [Suspect]
     Route: 048
  67. SEROQUEL [Suspect]
     Route: 048
  68. GLUTOSE [Concomitant]
  69. OLANZAPINE [Concomitant]
     Route: 048
  70. DUONEB [Concomitant]
     Indication: DYSPNOEA
  71. ATIVAN [Concomitant]
     Dosage: 1-2 MG
     Route: 048
  72. MILK OF MAGNESIA TAB [Concomitant]
  73. LISINOPRIL [Suspect]
     Route: 048
  74. SEROQUEL [Suspect]
     Route: 048
  75. SEROQUEL [Suspect]
     Route: 048
  76. SEROQUEL [Suspect]
     Route: 048
  77. REMERON [Concomitant]
     Route: 048
  78. OLANZAPINE [Concomitant]
     Indication: AGITATION
     Dosage: 2.5-5MG/0.5-1 TABLET
     Route: 048
  79. PRAVASTATIN [Concomitant]

REACTIONS (48)
  - ANXIETY [None]
  - NEUROPATHY PERIPHERAL [None]
  - BRADYCARDIA [None]
  - FIBRIN D DIMER INCREASED [None]
  - ESSENTIAL HYPERTENSION [None]
  - TYPE 2 DIABETES MELLITUS [None]
  - TREATMENT NONCOMPLIANCE [None]
  - DEMENTIA [None]
  - PARONYCHIA [None]
  - DYSLIPIDAEMIA [None]
  - COUGH [None]
  - WHEEZING [None]
  - VASCULAR DEMENTIA [None]
  - NECK PAIN [None]
  - BARRETT'S OESOPHAGUS [None]
  - CONFUSIONAL STATE [None]
  - PNEUMOTHORAX [None]
  - URETHRAL STENOSIS [None]
  - BENIGN PROSTATIC HYPERPLASIA [None]
  - ABDOMINAL HERNIA [None]
  - ABNORMAL BEHAVIOUR [None]
  - RESTLESS LEGS SYNDROME [None]
  - HYPOKINESIA [None]
  - PAIN IN EXTREMITY [None]
  - AGITATION [None]
  - JOINT INJURY [None]
  - HALLUCINATION, VISUAL [None]
  - DYSURIA [None]
  - HYPERCHOLESTEROLAEMIA [None]
  - HYPERTENSION [None]
  - HEAD INJURY [None]
  - DEMENTIA ALZHEIMER'S TYPE [None]
  - URINE OUTPUT DECREASED [None]
  - UPPER RESPIRATORY TRACT CONGESTION [None]
  - SWELLING [None]
  - CHEST PAIN [None]
  - CATARACT [None]
  - PULMONARY EMBOLISM [None]
  - HYPERLIPIDAEMIA [None]
  - AGGRESSION [None]
  - LIMB CRUSHING INJURY [None]
  - OESOPHAGITIS [None]
  - INSOMNIA [None]
  - HALLUCINATION [None]
  - PSYCHOTIC DISORDER [None]
  - GOUT [None]
  - DELUSION [None]
  - HYPOTENSION [None]
